FAERS Safety Report 4784975-7 (Version None)
Quarter: 2005Q3

REPORT INFORMATION
  Report Type: 
  Country: None (occurrence: None)
  Receive Date: 20050930
  Receipt Date: 20050927
  Transmission Date: 20060218
  Serious: Yes (Life-Threatening, Hospitalization)
  Sender: FDA-Public Use
  Company Number: PHBS2005DE14220

PATIENT
  Age: 62 Year
  Sex: Male

DRUGS (3)
  1. RISPERDAL [Suspect]
     Indication: SCHIZOPHRENIA
     Dosage: 37.5 MG 1 IN 2 WEEK
     Route: 030
     Dates: start: 20041119, end: 20050118
  2. RISPERDAL [Suspect]
     Dosage: 50 MG 1 IN 2 WEEK
     Route: 030
     Dates: start: 20050128, end: 20050629
  3. CLOZAPINE [Suspect]
     Indication: SCHIZOPHRENIA
     Dosage: 50 MG/D
     Route: 065
     Dates: start: 20050629

REACTIONS (12)
  - AMNESIA [None]
  - BEDRIDDEN [None]
  - CHILLS [None]
  - FALL [None]
  - GENERAL PHYSICAL HEALTH DETERIORATION [None]
  - PNEUMONIA [None]
  - SALIVARY HYPERSECRETION [None]
  - SPEECH DISORDER [None]
  - STUPOR [None]
  - TACHYARRHYTHMIA [None]
  - URINARY INCONTINENCE [None]
  - WAXY FLEXIBILITY [None]
